FAERS Safety Report 5961191-4 (Version None)
Quarter: 2008Q4

REPORT INFORMATION
  Report Type: 
  Country: None (occurrence: None)
  Receive Date: 20081121
  Receipt Date: 20081119
  Transmission Date: 20090506
  Serious: Yes (Hospitalization)
  Sender: FDA-Public Use
  Company Number: US-BIOGENIDEC-2008BI024338

PATIENT
  Age: 43 Year
  Sex: Female

DRUGS (2)
  1. TYSABRI [Suspect]
     Indication: MULTIPLE SCLEROSIS
     Route: 042
     Dates: start: 20080602, end: 20080701
  2. TYSABRI [Suspect]
     Route: 042
     Dates: start: 20081001

REACTIONS (3)
  - CONSTIPATION [None]
  - HERPES ZOSTER [None]
  - PANCREATIC NEOPLASM [None]
